FAERS Safety Report 8252066-9 (Version None)
Quarter: 2012Q2

REPORT INFORMATION
  Report Type: 
  Country: None (occurrence: None)
  Receive Date: 20120402
  Receipt Date: 20110303
  Transmission Date: 20120825
  Serious: No
  Sender: FDA-Public Use
  Company Number: US-ABBOTT-11P-163-0804246-00

PATIENT
  Sex: Male
  Weight: 88.636 kg

DRUGS (7)
  1. TESTOSTERONE [Suspect]
     Indication: BLOOD TESTOSTERONE DECREASED
     Dosage: DAILY DOSE: 5 GRAM(S) VIA PUMP
     Route: 062
     Dates: start: 20110101, end: 20110201
  2. AMITRIPTYLINE HYDROCHLORIDE [Concomitant]
     Indication: SLEEP DISORDER
     Dosage: DAILY DOSE: 25 MILLIGRAM(S), AT BEDTIME
     Route: 048
  3. OMEPRAZOLE [Concomitant]
     Indication: ULCER
     Dosage: DAILY DOSE: 20 MILLIGRAM(S)
     Route: 048
     Dates: start: 20101201
  4. MELOXICAM [Concomitant]
     Indication: OSTEOARTHRITIS
     Dosage: DAILY DOSE:  UNKNOWN
     Route: 048
     Dates: end: 20101201
  5. HYDROCHLOROTHIAZIDE AND LISINOPRIL [Concomitant]
     Indication: HYPERTENSION
     Dosage: DAILY DOSE:  UNKNOWN, 20/12.5, FREQUENCY: TWICE A DAY
     Route: 048
  6. DEXTROPROPOXYPHENE AND PARACETAMOL [Concomitant]
     Indication: OSTEOARTHRITIS
     Dosage: DAILY DOSE:  UNKNOWN
     Route: 048
  7. CALCIUM CITRATE [Concomitant]
     Indication: OSTEOARTHRITIS
     Dosage: DAILY DOSE:  UNKNOWN, 315 MILLIGRAM(S)/VIT D 200 IU, FREQUENCY: TWICE A DAY
     Route: 048

REACTIONS (4)
  - DRUG INEFFECTIVE [None]
  - PRURITUS [None]
  - RASH ERYTHEMATOUS [None]
  - DRUG ADMINISTERED AT INAPPROPRIATE SITE [None]
